FAERS Safety Report 9136280 (Version 2)
Quarter: 2013Q1

REPORT INFORMATION
  Report Type: Report from Study
  Country: NL (occurrence: NL)
  Receive Date: 20130304
  Receipt Date: 20130326
  Transmission Date: 20140127
  Serious: Yes (Hospitalization)
  Sender: FDA-Public Use
  Company Number: NL-GLAXOSMITHKLINE-B0872147A

PATIENT
  Age: 23 Year
  Sex: Male
  Weight: 67 kg

DRUGS (7)
  1. MALARONE [Suspect]
     Indication: MALARIA
     Dosage: 4TAB PER DAY
     Route: 048
     Dates: start: 20130216, end: 20130218
  2. INVESTIGATIONAL DRUG [Suspect]
     Indication: MALARIA
     Dates: start: 20121207, end: 20121207
  3. DIPHTHERIA ANTITOXIN [Concomitant]
     Dates: start: 20121221, end: 20121221
  4. TETANUS ANTITOXIN [Concomitant]
     Dates: start: 20121221, end: 20121221
  5. POLIOVIRUS VACCINE INACTIVATED NOS [Concomitant]
     Dates: start: 20121221, end: 20121221
  6. TYPHUS VACCINE [Concomitant]
     Dates: start: 20121221, end: 20121221
  7. HEP A/B VACCINE [Concomitant]
     Dates: start: 20121221, end: 20121221

REACTIONS (1)
  - Myocarditis [Recovered/Resolved]
